FAERS Safety Report 8983931 (Version 2)
Quarter: 2013Q2

REPORT INFORMATION
  Report Type: Spontaneous
  Country: US (occurrence: None)
  Receive Date: 20120508
  Receipt Date: 20121107
  Transmission Date: 20140414
  Serious: No
  Sender: FDA-Public Use
  Company Number: 2012HGS-003291

PATIENT
  Age: 68 Year
  Sex: Female
  Weight: 65.77 kg

DRUGS (11)
  1. BENLYSTA [Suspect]
     Indication: SYSTEMIC LUPUS ERYTHEMATOSUS
     Route: 041
  2. PREDNISONE [Concomitant]
  3. GABAPENTIN [Concomitant]
  4. CYMBALTA [Concomitant]
  5. XANAX [Concomitant]
  6. AMBIEN CR [Concomitant]
  7. VICODIN [Concomitant]
  8. PLAQUENIL [Concomitant]
  9. LOMOTIL [Concomitant]
  10. BUPROPION [Concomitant]
  11. CELLCEPT (MYOCPHENOLATE MOFETIL)  (MYOCPHENOLATE MOFETIL) [Concomitant]

REACTIONS (1)
  - Alopecia [None]
